FAERS Safety Report 15306663 (Version 3)
Quarter: 2019Q2

REPORT INFORMATION
  Report Type: Spontaneous
  Country: US (occurrence: US)
  Receive Date: 20180822
  Receipt Date: 20190611
  Transmission Date: 20190711
  Serious: Yes (Other)
  Sender: FDA-Public Use
  Company Number: US-GLAXOSMITHKLINE-US2018GSK151928

PATIENT
  Sex: Female

DRUGS (5)
  1. PREVACID [Suspect]
     Active Substance: LANSOPRAZOLE
     Indication: PRODUCT USED FOR UNKNOWN INDICATION
     Dosage: UNK
     Route: 065
  2. PREVACID [Suspect]
     Active Substance: LANSOPRAZOLE
     Indication: PRODUCT USED FOR UNKNOWN INDICATION
     Dosage: UNK
     Route: 065
  3. OMEPRAZOLE. [Suspect]
     Active Substance: OMEPRAZOLE
     Indication: GASTROOESOPHAGEAL REFLUX DISEASE
     Dosage: 20 MG, QD
     Route: 048
  4. OMEPRAZOLE. [Suspect]
     Active Substance: OMEPRAZOLE
     Dosage: 20 MG, BID
     Route: 048
  5. OMEPRAZOLE. [Suspect]
     Active Substance: OMEPRAZOLE
     Indication: PRODUCT USED FOR UNKNOWN INDICATION
     Dosage: 20 MG, BID
     Route: 048

REACTIONS (22)
  - Dysuria [Unknown]
  - Haematuria [Unknown]
  - Fibrillary glomerulonephritis [Unknown]
  - Acute kidney injury [Unknown]
  - Renal failure [Unknown]
  - End stage renal disease [Unknown]
  - Nephrosclerosis [Unknown]
  - Renal transplant [Unknown]
  - Glomerulonephritis chronic [Unknown]
  - Nephrolithiasis [Unknown]
  - Renal disorder [Unknown]
  - Kidney small [Unknown]
  - Nephrectomy [Unknown]
  - Nephritic syndrome [Unknown]
  - Renal atrophy [Unknown]
  - Renal cyst [Unknown]
  - Glomerulonephritis acute [Unknown]
  - Renal injury [Unknown]
  - Proteinuria [Unknown]
  - Chronic kidney disease [Unknown]
  - Kidney infection [Unknown]
  - Nephrogenic anaemia [Unknown]
